FAERS Safety Report 7461669-0 (Version None)
Quarter: 2011Q2

REPORT INFORMATION
  Report Type: 
  Country: None (occurrence: None)
  Receive Date: 20110506
  Receipt Date: 20110421
  Transmission Date: 20111010
  Serious: No
  Sender: FDA-Public Use
  Company Number: US-B.I. PHARMACEUTICALS,INC./RIDGEFIELD-2011-BP-06883BP

PATIENT
  Age: 81 Year
  Sex: Female

DRUGS (10)
  1. PANTOPRAZOLE [Concomitant]
     Dosage: 40 MG
  2. OMEGA [Concomitant]
  3. CENTRUM SILVER [Concomitant]
  4. PLAVIX [Concomitant]
     Dosage: 75 MG
  5. AMIODARONE [Concomitant]
     Dosage: 200 MG
  6. METOPROLOL TARTRATE [Concomitant]
     Dosage: 50 MG
  7. ALLOPURINOL [Concomitant]
     Dosage: 300 MG
  8. PRADAXA [Suspect]
     Indication: ATRIAL FIBRILLATION
     Route: 048
     Dates: start: 20110201
  9. VYTORIN [Concomitant]
  10. DIOVAN [Concomitant]

REACTIONS (5)
  - DIZZINESS [None]
  - INSOMNIA [None]
  - HAEMATOCHEZIA [None]
  - ASTHENIA [None]
  - NIGHT SWEATS [None]
